FAERS Safety Report 4467082-2 (Version None)
Quarter: 2004Q4

REPORT INFORMATION
  Report Type: 
  Country: None (occurrence: None)
  Receive Date: 20041004
  Receipt Date: 20041004
  Transmission Date: 20050328
  Serious: Yes (Hospitalization)
  Sender: FDA-Public Use
  Company Number: None

PATIENT
  Age: 55 Year
  Sex: Male

DRUGS (1)
  1. NOVOSEVEN [Suspect]
     Indication: HAEMORRHAGE
     Dosage: 4.8 MG X 1 IV
     Route: 042
     Dates: start: 20040626, end: 20040626

REACTIONS (3)
  - HAEMORRHAGE INTRACRANIAL [None]
  - MEDICAL DEVICE COMPLICATION [None]
  - THROMBOSIS [None]
